FAERS Safety Report 5595231-1 (Version None)
Quarter: 2008Q1

REPORT INFORMATION
  Report Type: 
  Country: None (occurrence: None)
  Receive Date: 20080117
  Receipt Date: 20080107
  Transmission Date: 20080703
  Serious: Yes (Life-Threatening, Hospitalization, Other)
  Sender: FDA-Public Use
  Company Number: JP-PFIZER INC-2007063435

PATIENT
  Sex: Female
  Weight: 67 kg

DRUGS (14)
  1. ZOLOFT [Suspect]
     Indication: DEPRESSION
     Route: 048
     Dates: start: 20060908, end: 20070130
  2. ALL OTHER THERAPEUTIC PRODUCTS [Concomitant]
     Route: 048
  3. GASMOTIN [Concomitant]
     Route: 048
     Dates: start: 20050418
  4. RIVOTRIL [Concomitant]
     Route: 048
     Dates: start: 20020116
  5. MEILAX [Concomitant]
     Route: 048
     Dates: start: 20020116
  6. DEPAS [Concomitant]
     Route: 048
     Dates: start: 20020116
  7. ABILIFY [Concomitant]
     Route: 048
     Dates: start: 20060715
  8. PAXIL [Concomitant]
     Route: 048
     Dates: start: 20020116
  9. HALCION [Concomitant]
     Route: 048
     Dates: start: 20020116
  10. SILECE [Concomitant]
     Route: 048
     Dates: start: 20020116
  11. LENDORMIN [Concomitant]
     Route: 048
     Dates: start: 20020116
  12. OMEPRAL [Concomitant]
     Route: 048
     Dates: start: 20050418
  13. DESYREL [Concomitant]
     Route: 048
     Dates: start: 20020116
  14. EBRANTIL [Concomitant]
     Route: 048
     Dates: start: 20061022

REACTIONS (4)
  - HEPATITIS ACUTE [None]
  - PSYCHOTIC DISORDER [None]
  - URINE ABNORMALITY [None]
  - URINE OUTPUT DECREASED [None]
